FAERS Safety Report 9266862 (Version 2)
Quarter: 2013Q2

REPORT INFORMATION
  Report Type: Spontaneous
  Country: US (occurrence: US)
  Receive Date: 20130502
  Receipt Date: 20130527
  Transmission Date: 20140414
  Serious: No
  Sender: FDA-Public Use
  Company Number: US-009507513-1304USA015618

PATIENT
  Age: 38 Year
  Sex: Female
  Weight: 81.63 kg

DRUGS (2)
  1. NEXPLANON [Suspect]
     Dosage: 1 STANDARD PACKAGE OF PF APPLI OF 1
     Route: 059
     Dates: start: 20130424, end: 20130424
  2. NEXPLANON [Suspect]
     Dosage: 1 STANDARD PACKAGE OF PF APPLI OF 1
     Route: 059
     Dates: start: 20130424

REACTIONS (2)
  - Device difficult to use [Recovered/Resolved]
  - No adverse event [Unknown]
